FAERS Safety Report 11162049 (Version 4)
Quarter: 2017Q2

REPORT INFORMATION
  Report Type: Spontaneous
  Country: US (occurrence: US)
  Receive Date: 20150604
  Receipt Date: 20170606
  Transmission Date: 20170829
  Serious: No
  Sender: FDA-Public Use
  Company Number: US-SA-2014SA118250

PATIENT
  Age: 66 Year
  Sex: Female

DRUGS (10)
  1. LEVEMIR [Concomitant]
     Active Substance: INSULIN DETEMIR
  2. LANTUS SOLOSTAR [Suspect]
     Active Substance: INSULIN GLARGINE
     Indication: TYPE 2 DIABETES MELLITUS
     Dosage: DOSE:52 UNIT(S)
     Route: 065
     Dates: start: 201406
  3. FLEXPEN [Concomitant]
     Active Substance: UNSPECIFIED INGREDIENT
  4. SOLOSTAR [Concomitant]
     Active Substance: DEVICE
     Dates: start: 20140701
  5. LANTUS SOLOSTAR [Suspect]
     Active Substance: INSULIN GLARGINE
     Indication: TYPE 2 DIABETES MELLITUS
     Dosage: DOSE:48 UNIT(S)
     Route: 065
     Dates: start: 20140701
  6. NOVOLOG [Concomitant]
     Active Substance: INSULIN ASPART
  7. LANTUS SOLOSTAR [Suspect]
     Active Substance: INSULIN GLARGINE
     Indication: TYPE 2 DIABETES MELLITUS
     Dosage: DOSE:52 UNIT(S)
     Route: 065
     Dates: start: 201406
  8. BABY ASPIRIN [Suspect]
     Active Substance: ASPIRIN
     Route: 065
     Dates: end: 2015
  9. SOLOSTAR [Concomitant]
     Active Substance: DEVICE
     Dates: start: 201406
  10. FLEXTOUCH [Concomitant]
     Active Substance: DEVICE

REACTIONS (11)
  - Feeling abnormal [Unknown]
  - Arthritis [Unknown]
  - Gastric disorder [Unknown]
  - Blood glucose increased [Unknown]
  - Pruritus [Unknown]
  - Pain in extremity [Recovered/Resolved]
  - Headache [Recovered/Resolved]
  - Muscle spasms [Unknown]
  - Blood glucose decreased [Not Recovered/Not Resolved]
  - Nausea [Not Recovered/Not Resolved]
  - Injection site pain [Unknown]

NARRATIVE: CASE EVENT DATE: 201410
